FAERS Safety Report 23122267 (Version 2)
Quarter: 2025Q1

REPORT INFORMATION
  Report Type: Spontaneous
  Country: US (occurrence: US)
  Receive Date: 20231030
  Receipt Date: 20250327
  Transmission Date: 20250409
  Serious: No
  Sender: SANOFI AVENTIS
  Company Number: US-SA-SAC20231025000043

PATIENT
  Age: 62 Year
  Sex: Female

DRUGS (31)
  1. DUPIXENT [Suspect]
     Active Substance: DUPILUMAB
     Indication: Asthma
     Dosage: 300 MG, QOW
     Route: 058
     Dates: start: 20230523
  2. ALBUTEROL SULFATE [Concomitant]
     Active Substance: ALBUTEROL SULFATE
     Indication: Asthma
  3. BUSPIRONE [Concomitant]
     Active Substance: BUSPIRONE HYDROCHLORIDE
  4. CLENPIQ [Concomitant]
     Active Substance: ANHYDROUS CITRIC ACID\MAGNESIUM OXIDE\SODIUM PICOSULFATE
  5. DULOXETINE [Concomitant]
     Active Substance: DULOXETINE
     Indication: Major depression
  6. GABAPENTIN [Concomitant]
     Active Substance: GABAPENTIN
  7. MONTELUKAST [Concomitant]
     Active Substance: MONTELUKAST
     Indication: Asthma
  8. NYSTATIN [Concomitant]
     Active Substance: NYSTATIN
  9. PREDNISONE [Concomitant]
     Active Substance: PREDNISONE
     Indication: Asthma
  10. VITAMIN D NOS [Concomitant]
     Active Substance: CHOLECALCIFEROL\ERGOCALCIFEROL
  11. DULOXETINE [Concomitant]
     Active Substance: DULOXETINE
  12. PREDNISONE [Concomitant]
     Active Substance: PREDNISONE
  13. CLARITHROMYCIN [Concomitant]
     Active Substance: CLARITHROMYCIN
  14. GABAPENTIN [Concomitant]
     Active Substance: GABAPENTIN
  15. BUDESONIDE\FORMOTEROL [Concomitant]
     Active Substance: BUDESONIDE\FORMOTEROL
  16. FLUCONAZOLE [Concomitant]
     Active Substance: FLUCONAZOLE
  17. FLUCONAZOLE [Concomitant]
     Active Substance: FLUCONAZOLE
  18. HYDROMORPHONE [Concomitant]
     Active Substance: HYDROMORPHONE
  19. LIDOCAINE [Concomitant]
     Active Substance: LIDOCAINE
  20. METFORMIN [Concomitant]
     Active Substance: METFORMIN HYDROCHLORIDE
  21. METHYLPREDNISOLONE [Concomitant]
     Active Substance: METHYLPREDNISOLONE
  22. MOUNJARO [Concomitant]
     Active Substance: TIRZEPATIDE
  23. ONDANSETRON [Concomitant]
     Active Substance: ONDANSETRON
  24. OXYCODONE [Interacting]
     Active Substance: OXYCODONE
  25. OZEMPIC [Concomitant]
     Active Substance: SEMAGLUTIDE
  26. PREGABALIN [Concomitant]
     Active Substance: PREGABALIN
  27. PREGABALIN [Concomitant]
     Active Substance: PREGABALIN
  28. PREGABALIN [Concomitant]
     Active Substance: PREGABALIN
  29. ROSUVASTATIN [Concomitant]
     Active Substance: ROSUVASTATIN
  30. TIZANIDINE [Concomitant]
     Active Substance: TIZANIDINE
  31. ZINC SULFATE [Concomitant]
     Active Substance: ZINC SULFATE

REACTIONS (3)
  - Impaired quality of life [Recovered/Resolved]
  - Asthma [Recovered/Resolved]
  - Drug ineffective [Recovered/Resolved]

NARRATIVE: CASE EVENT DATE: 20230101
